FAERS Safety Report 5978055-2 (Version None)
Quarter: 2008Q4

REPORT INFORMATION
  Report Type: 
  Country: None (occurrence: None)
  Receive Date: 20081203
  Receipt Date: 20081124
  Transmission Date: 20090506
  Serious: Yes (Hospitalization)
  Sender: FDA-Public Use
  Company Number: IT-MERCK-0811ITA00031

PATIENT
  Age: 63 Year
  Sex: Female

DRUGS (1)
  1. ZOCOR [Suspect]
     Indication: DYSLIPIDAEMIA
     Route: 048
     Dates: start: 20081020, end: 20081027

REACTIONS (2)
  - HEPATIC ENZYME INCREASED [None]
  - MUSCLE ENZYME INCREASED [None]
